FAERS Safety Report 4429411-5 (Version None)
Quarter: 2004Q3

REPORT INFORMATION
  Report Type: 
  Country: None (occurrence: None)
  Receive Date: 20040819
  Receipt Date: 20040813
  Transmission Date: 20050211
  Serious: Yes (Other)
  Sender: FDA-Public Use
  Company Number: US-MERCK-0408USA01251

PATIENT

DRUGS (1)
  1. INDOCIN I.V. [Suspect]
     Route: 051

REACTIONS (2)
  - DRUG INEFFECTIVE [None]
  - THERAPY NON-RESPONDER [None]
